FAERS Safety Report 22784542 (Version 4)
Quarter: 2024Q1

REPORT INFORMATION
  Report Type: Report from Study
  Country: US (occurrence: US)
  Receive Date: 20230804
  Receipt Date: 20240320
  Transmission Date: 20240409
  Serious: Yes (Hospitalization, Other)
  Sender: FDA-Public Use
  Company Number: US-ACADIA PHARMACEUTICALS INC.-ACA-2023-TRF-002857

PATIENT
  Age: 13 Year
  Sex: Female

DRUGS (11)
  1. DAYBUE [Suspect]
     Active Substance: TROFINETIDE
     Indication: Rett syndrome
     Dosage: 50 MILLILITER, BID
     Route: 048
  2. DAYBUE [Suspect]
     Active Substance: TROFINETIDE
     Dosage: 30 MILLILITER, TID
     Route: 048
  3. CLONIDINE [Concomitant]
     Active Substance: CLONIDINE
  4. FYCOMPA [Concomitant]
     Active Substance: PERAMPANEL
  5. NYSTATIN [Concomitant]
     Active Substance: NYSTATIN
  6. VALPROIC ACID [Concomitant]
     Active Substance: VALPROIC ACID
  7. EPIDIOLEX [Concomitant]
     Active Substance: CANNABIDIOL
  8. MIRALAX [Concomitant]
     Active Substance: POLYETHYLENE GLYCOL 3350
  9. PROBIOTICS NOS [Concomitant]
     Active Substance: PROBIOTICS NOS
  10. AZITHROMYCIN [Concomitant]
     Active Substance: AZITHROMYCIN
  11. FLUCONAZOLE [Concomitant]
     Active Substance: FLUCONAZOLE

REACTIONS (7)
  - Tremor [Not Recovered/Not Resolved]
  - Pneumonia [Not Recovered/Not Resolved]
  - Rhinovirus infection [Not Recovered/Not Resolved]
  - Inappropriate schedule of product administration [Not Recovered/Not Resolved]
  - Underdose [Not Recovered/Not Resolved]
  - Fungal infection [Not Recovered/Not Resolved]
  - Diarrhoea [Not Recovered/Not Resolved]

NARRATIVE: CASE EVENT DATE: 20230629
